FAERS Safety Report 6439188-X (Version None)
Quarter: 2009Q4

REPORT INFORMATION
  Report Type: 
  Country: None (occurrence: None)
  Receive Date: 20091112
  Receipt Date: 20081212
  Transmission Date: 20100525
  Serious: Yes (Hospitalization)
  Sender: FDA-Public Use
  Company Number: 200814451

PATIENT
  Age: 74 Year
  Sex: Female

DRUGS (3)
  1. VIVAGLOBIN [Suspect]
     Indication: IMMUNODEFICIENCY
     Dosage: SC
     Route: 058
     Dates: start: 20081124, end: 20081210
  2. VIVAGLOBIN [Suspect]
  3. VITAMINS [Concomitant]

REACTIONS (1)
  - HEADACHE [None]
